FAERS Safety Report 7319398-X (Version None)
Quarter: 2011Q1

REPORT INFORMATION
  Report Type: 
  Country: None (occurrence: None)
  Receive Date: 20110228
  Receipt Date: 20100302
  Transmission Date: 20110831
  Serious: No
  Sender: FDA-Public Use
  Company Number: A0848676A

PATIENT
  Age: 14 Year
  Sex: Male

DRUGS (3)
  1. ABILIFY [Concomitant]
  2. LAMOTRIGINE [Suspect]
     Indication: BIPOLAR DISORDER
     Dosage: 100MG PER DAY
     Route: 048
  3. ATARAX [Concomitant]

REACTIONS (1)
  - RASH [None]
